FAERS Safety Report 6532013-8 (Version None)
Quarter: 2010Q1

REPORT INFORMATION
  Report Type: 
  Country: None (occurrence: None)
  Receive Date: 20100107
  Receipt Date: 20100107
  Transmission Date: 20100710
  Serious: Yes (Disabling)
  Sender: FDA-Public Use
  Company Number: None

PATIENT
  Age: 77 Year
  Sex: Female
  Weight: 63 kg

DRUGS (1)
  1. AMBISOME [Suspect]
     Indication: PNEUMONIA FUNGAL
     Dosage: 200MG Q24HR IV
     Route: 042
     Dates: start: 20091112, end: 20091120

REACTIONS (1)
  - RENAL FAILURE ACUTE [None]
